FAERS Safety Report 7265769-X (Version None)
Quarter: 2011Q1

REPORT INFORMATION
  Report Type: 
  Country: None (occurrence: None)
  Receive Date: 20110131
  Receipt Date: 20110124
  Transmission Date: 20110831
  Serious: Yes (Other)
  Sender: FDA-Public Use
  Company Number: FR-PFIZER INC-2011015392

PATIENT
  Age: 70 Year
  Sex: Female

DRUGS (8)
  1. VALSARTAN [Concomitant]
     Indication: HYPERTENSION
  2. SALBUTAMOL [Concomitant]
     Indication: ASTHMA
  3. NICARDIPINE [Concomitant]
     Indication: HYPERTENSION
  4. ASPIRIN [Concomitant]
  5. ALDACTONE [Suspect]
     Indication: HYPERTENSION
  6. FUROSEMIDE [Suspect]
     Indication: HYPERTENSION
  7. NEBIVOLOL [Concomitant]
     Indication: HYPERTENSION
  8. CARBAMAZEPINE [Concomitant]
     Indication: EPILEPSY

REACTIONS (1)
  - HYPONATRAEMIA [None]
